FAERS Safety Report 10992281 (Version 1)
Quarter: 2015Q2

REPORT INFORMATION
  Report Type: Report from Study
  Country: US (occurrence: US)
  Receive Date: 20150406
  Receipt Date: 20150406
  Transmission Date: 20150821
  Serious: Yes (Other)
  Sender: FDA-Public Use
  Company Number: US-GILEAD-2015-0145416

PATIENT
  Age: 42 Year
  Sex: Male

DRUGS (1)
  1. EMTRICITABINE/TENOFOVIR DISOPROXIL FUMARATE [Suspect]
     Active Substance: EMTRICITABINE\TENOFOVIR DISOPROXIL
     Indication: PRODUCT USED FOR UNKNOWN INDICATION
     Dosage: UNK
     Route: 065
     Dates: start: 201401

REACTIONS (6)
  - Treatment noncompliance [Unknown]
  - Cardiovascular disorder [Unknown]
  - Drug resistance [Unknown]
  - Drug ineffective [Unknown]
  - CD4 lymphocytes decreased [Unknown]
  - Diabetes mellitus [Unknown]
